APPROVED DRUG PRODUCT: CROMOLYN SODIUM
Active Ingredient: CROMOLYN SODIUM
Strength: 10MG/ML
Dosage Form/Route: SOLUTION;INHALATION
Application: A076469 | Product #001
Applicant: WATSON LABORATORIES INC
Approved: Jun 17, 2005 | RLD: No | RS: No | Type: DISCN